FAERS Safety Report 24310533 (Version 1)
Quarter: 2024Q3

REPORT INFORMATION
  Report Type: Spontaneous
  Country: US (occurrence: US)
  Receive Date: 20240912
  Receipt Date: 20240912
  Transmission Date: 20241017
  Serious: Yes (Hospitalization)
  Sender: GRIFOLS
  Company Number: US-IGSA-BIG0030595

PATIENT
  Age: 77 Year
  Sex: Male
  Weight: 82.086 kg

DRUGS (3)
  1. PROLASTIN-C LIQUID [Suspect]
     Active Substance: .ALPHA.1-PROTEINASE INHIBITOR HUMAN
     Indication: Alpha-1 antitrypsin deficiency
     Dosage: 5065 MILLIGRAM, Q.WK.
     Route: 042
     Dates: start: 20240826, end: 20240826
  2. PROLASTIN-C LIQUID [Suspect]
     Active Substance: .ALPHA.1-PROTEINASE INHIBITOR HUMAN
     Dosage: 5065 MILLIGRAM, Q.WK.
     Route: 042
     Dates: start: 20240902, end: 20240902
  3. PROLASTIN-C LIQUID [Suspect]
     Active Substance: .ALPHA.1-PROTEINASE INHIBITOR HUMAN
     Dosage: 5065 MILLIGRAM, Q.WK.
     Route: 042

REACTIONS (7)
  - Respiratory tract infection [Recovering/Resolving]
  - Dyspnoea [Recovering/Resolving]
  - Oxygen saturation decreased [Recovering/Resolving]
  - COVID-19 [Recovering/Resolving]
  - Nasopharyngitis [Recovering/Resolving]
  - Body temperature [Recovering/Resolving]
  - Pain [Recovering/Resolving]

NARRATIVE: CASE EVENT DATE: 20240829
